FAERS Safety Report 5901762-4 (Version None)
Quarter: 2008Q3

REPORT INFORMATION
  Report Type: 
  Country: None (occurrence: None)
  Receive Date: 20080929
  Receipt Date: 20080925
  Transmission Date: 20090109
  Serious: Yes (Hospitalization)
  Sender: FDA-Public Use
  Company Number: US-BRISTOL-MYERS SQUIBB COMPANY-14347884

PATIENT
  Age: 74 Year
  Sex: Female
  Weight: 81 kg

DRUGS (19)
  1. COUMADIN [Suspect]
     Dosage: 1 DOSAGE FORM: 1/2 TABLET QD AND 2.5MG ON THURSDAY SINCE 23-MAR-2008
     Dates: start: 20080323
  2. PLAVIX [Suspect]
     Indication: CARDIAC DISORDER
     Dates: start: 20020101
  3. DETROL LA [Concomitant]
  4. ASPIRIN [Concomitant]
  5. ZETIA [Concomitant]
     Dosage: 4-5YEARS
  6. PACERONE [Concomitant]
     Dates: start: 20080301
  7. ATENOLOL [Concomitant]
     Dosage: 7-9YEARS
  8. MICARDIS [Concomitant]
     Dosage: 1 AND 1/2 - 2YR
  9. PREVACID [Concomitant]
     Dosage: MANY YEARS
  10. NABUMETONE [Concomitant]
  11. ISOSORBIDE MONONITRATE [Concomitant]
     Dosage: ER.TAKEN FROM AN UNK DATE- DISCONTD;BEGUN AGAIN IN JUN08
     Dates: start: 20080601
  12. FUROSEMIDE [Concomitant]
  13. WELCHOL [Concomitant]
     Dosage: 4-5YR.
  14. SIMVASTATIN [Concomitant]
  15. CALCIUM [Concomitant]
  16. OSTEO BI-FLEX [Concomitant]
     Dosage: 1DF=1TAB.
  17. GARLIC [Concomitant]
     Dosage: FORMULATION: TAB. 5-6YR.
  18. POTASSIUM CHLORIDE [Concomitant]
  19. ANTIBIOTICS [Concomitant]

REACTIONS (4)
  - CARDIAC DISORDER [None]
  - DIZZINESS [None]
  - HAEMORRHAGE [None]
  - PULMONARY OEDEMA [None]
